FAERS Safety Report 7310433-1 (Version None)
Quarter: 2011Q1

REPORT INFORMATION
  Report Type: 
  Country: None (occurrence: None)
  Receive Date: 20110211
  Receipt Date: 20110208
  Transmission Date: 20110831
  Serious: Yes (Death)
  Sender: FDA-Public Use
  Company Number: 2010SP053609

PATIENT
  Age: 34 Year
  Sex: Female

DRUGS (13)
  1. OXYCONTIN [Concomitant]
  2. DORMICUM [Concomitant]
  3. ROCURONIUM BROMIDE [Suspect]
     Indication: MUSCLE RELAXANT THERAPY
     Dosage: 40 MG; ONCE; IV
     Route: 042
     Dates: start: 20101005, end: 20101005
  4. DEXAMETHASONE [Concomitant]
  5. GASTRODYNE (GLYCOPYRROLATE) [Concomitant]
  6. CIPRALEX [Concomitant]
  7. LIDOCAINE [Suspect]
     Indication: INDUCTION OF ANAESTHESIA
     Dates: start: 20101005, end: 20101005
  8. LIDOCAINE [Suspect]
     Indication: LOCAL ANAESTHESIA
     Dates: start: 20101005, end: 20101005
  9. ATORVASTATIN CALCIUM [Concomitant]
  10. PROPOPHOL [Concomitant]
  11. COCAINE HYDROCHLORIDE [Concomitant]
  12. FENTANYL [Concomitant]
  13. PANADOL (ACETAMINOPHEN) [Concomitant]

REACTIONS (5)
  - HEART RATE INCREASED [None]
  - BLOOD PRESSURE INCREASED [None]
  - PULSELESS ELECTRICAL ACTIVITY [None]
  - OXYGEN SATURATION DECREASED [None]
  - STRESS CARDIOMYOPATHY [None]
